FAERS Safety Report 4718506-4 (Version None)
Quarter: 2005Q3

REPORT INFORMATION
  Report Type: 
  Country: None (occurrence: None)
  Receive Date: 20050720
  Receipt Date: 20050630
  Transmission Date: 20060218
  Serious: No
  Sender: FDA-Public Use
  Company Number: US-BRISTOL-MYERS SQUIBB COMPANY-13020623

PATIENT
  Age: 53 Year
  Sex: Female
  Weight: 53 kg

DRUGS (3)
  1. ESTRACE [Suspect]
     Indication: MENOPAUSAL SYMPTOMS
     Dosage: 1/2 TABLET DAILY
     Route: 048
     Dates: start: 20040501, end: 20040501
  2. ESTRADIOL [Suspect]
  3. ESTRACE [Suspect]
     Indication: VULVOVAGINAL DRYNESS
     Route: 067
     Dates: start: 20041201, end: 20041201

REACTIONS (3)
  - DYSPEPSIA [None]
  - HEART RATE INCREASED [None]
  - PRURITUS GENERALISED [None]
